FAERS Safety Report 10769789 (Version 1)
Quarter: 2015Q1

REPORT INFORMATION
  Report Type: Spontaneous
  Country: CA (occurrence: CA)
  Receive Date: 20150206
  Receipt Date: 20150206
  Transmission Date: 20150721
  Serious: Yes (Other)
  Sender: FDA-Public Use
  Company Number: CA-TARO PHARMACEUTICALS U.S.A., INC-2015SUN00318

PATIENT

DRUGS (2)
  1. TARO-MOMETASONE CREAM 0.1% [Suspect]
     Active Substance: MOMETASONE
     Indication: FUNGAL INFECTION
     Dosage: UNK
     Route: 065
     Dates: start: 201409, end: 20150120
  2. KETODERM CREAM 2% [Suspect]
     Active Substance: KETOCONAZOLE
     Indication: FUNGAL INFECTION
     Dosage: UNK
     Route: 065
     Dates: start: 201409, end: 20150120

REACTIONS (3)
  - Peripheral arterial occlusive disease [Unknown]
  - Pain in extremity [Unknown]
  - Off label use [Unknown]

NARRATIVE: CASE EVENT DATE: 20150120
